FAERS Safety Report 8421987-6 (Version None)
Quarter: 2012Q2

REPORT INFORMATION
  Report Type: 
  Country: None (occurrence: None)
  Receive Date: 20120605
  Receipt Date: 20120605
  Transmission Date: 20120825
  Serious: Yes (Life-Threatening, Disabling)
  Sender: FDA-Public Use
  Company Number: None

PATIENT
  Sex: Male
  Weight: 79.3795 kg

DRUGS (2)
  1. REMERON [Suspect]
     Dosage: 15 MILLIGRAM DAILY ALMOST
  2. TRAZODONE HCL [Suspect]
     Dosage: 50 MILLIGRAM DAILY ALMOST

REACTIONS (4)
  - DYSPHAGIA [None]
  - AMNESIA [None]
  - EYE PAIN [None]
  - VISION BLURRED [None]
